FAERS Safety Report 9469945 (Version 4)
Quarter: 2013Q4

REPORT INFORMATION
  Report Type: Spontaneous
  Country: GB (occurrence: GB)
  Receive Date: 20130822
  Receipt Date: 20131021
  Transmission Date: 20140711
  Serious: Yes (Other)
  Sender: FDA-Public Use
  Company Number: PHFR2013GB004271

PATIENT
  Age: 76 Year
  Sex: Female
  Weight: 83.7 kg

DRUGS (8)
  1. CLOZARIL [Suspect]
     Indication: SCHIZOPHRENIA, PARANOID TYPE
     Dosage: UNK
     Route: 048
     Dates: start: 20080615
  2. CLOZARIL [Suspect]
     Dosage: 400 MG, DAILY
     Route: 048
     Dates: start: 2010
  3. ASPIRIN [Concomitant]
     Dosage: 75 MG
     Route: 048
  4. HYOSCINE HYDROBROMIDE [Concomitant]
     Indication: SALIVARY HYPERSECRETION
     Dosage: 300 UG, UNK
     Route: 048
  5. LEVETIRACETAM [Concomitant]
     Indication: CONVULSION
     Dosage: 250 MG, UNK
     Route: 048
  6. METFORMIN [Concomitant]
     Indication: DIABETES MELLITUS
     Dosage: 850 MG, UNK
     Route: 048
  7. PARACETAMOL [Concomitant]
     Indication: PAIN
     Dosage: 1000 MG, UNK
     Route: 048
  8. RAMIPRIL [Concomitant]
     Indication: BLOOD PRESSURE
     Dosage: 5 MG, UNK
     Route: 048

REACTIONS (3)
  - Hypophagia [Recovering/Resolving]
  - Blood iron decreased [Unknown]
  - Haemoglobin decreased [Not Recovered/Not Resolved]
